FAERS Safety Report 10842463 (Version 1)
Quarter: 2015Q1

REPORT INFORMATION
  Report Type: Spontaneous
  Country: US (occurrence: US)
  Receive Date: 20150220
  Receipt Date: 20150220
  Transmission Date: 20150721
  Serious: No
  Sender: FDA-Public Use
  Company Number: US-TEVA-536743USA

PATIENT

DRUGS (1)
  1. GLYBURIDE AND METFORMIN [Suspect]
     Active Substance: GLYBURIDE\METFORMIN HYDROCHLORIDE
     Indication: BLOOD GLUCOSE INCREASED
     Dosage: 2.5MG/500MG

REACTIONS (2)
  - Blood glucose increased [Unknown]
  - Drug ineffective [Unknown]
